FAERS Safety Report 5257058-X (Version None)
Quarter: 2007Q1

REPORT INFORMATION
  Report Type: 
  Country: None (occurrence: None)
  Receive Date: 20070307
  Receipt Date: 20070302
  Transmission Date: 20070707
  Serious: Yes (Death, Hospitalization)
  Sender: FDA-Public Use
  Company Number: DE-BAYER-200611231BVD

PATIENT
  Age: 66 Year
  Sex: Male
  Weight: 60 kg

DRUGS (19)
  1. SORAFENIB [Suspect]
     Indication: NON-SMALL CELL LUNG CANCER
     Dosage: TOTAL DAILY DOSE: 400 MG  UNIT DOSE: 200 MG
     Route: 048
     Dates: start: 20060909, end: 20060915
  2. PACLITAXEL [Suspect]
     Route: 042
     Dates: start: 20060908, end: 20060908
  3. CARBOPLATIN [Suspect]
     Route: 042
     Dates: start: 20060908, end: 20060908
  4. LISINOPRIL [Concomitant]
     Route: 048
  5. CONCOR [Concomitant]
     Route: 048
  6. LEVOTHYROXINE SODIUM [Concomitant]
     Route: 048
  7. MST [Concomitant]
  8. PANTOZOL [Concomitant]
     Route: 048
  9. ZOFRAN [Concomitant]
     Route: 048
  10. ALLOPURINOL [Concomitant]
     Route: 048
  11. DURAGESIC-100 [Concomitant]
  12. NOVALGIN [Concomitant]
     Route: 048
  13. AMPHO-MORONAL [Concomitant]
     Route: 048
  14. DEXAMETHASONE [Concomitant]
  15. TAGAMET [Concomitant]
  16. TAVEGIL [Concomitant]
  17. SEVREDOL [Concomitant]
  18. HCT [Concomitant]
  19. IMODIUM [Concomitant]
     Indication: DIARRHOEA
     Route: 048
     Dates: start: 20060914, end: 20060914

REACTIONS (4)
  - HAEMOLYSIS [None]
  - LUNG NEOPLASM MALIGNANT [None]
  - MALIGNANT NEOPLASM PROGRESSION [None]
  - MULTI-ORGAN FAILURE [None]
